FAERS Safety Report 15852537 (Version 1)
Quarter: 2019Q1

REPORT INFORMATION
  Report Type: Spontaneous
  Country: CA (occurrence: CA)
  Receive Date: 20190122
  Receipt Date: 20190122
  Transmission Date: 20190417
  Serious: Yes (Other)
  Sender: FDA-Public Use
  Company Number: CA-ABBVIE-19K-028-2634322-00

PATIENT
  Sex: Male

DRUGS (6)
  1. HUMIRA [Suspect]
     Active Substance: ADALIMUMAB
     Route: 058
  2. NAPROXEN. [Concomitant]
     Active Substance: NAPROXEN
     Indication: PSORIATIC ARTHROPATHY
     Route: 048
  3. HUMIRA [Suspect]
     Active Substance: ADALIMUMAB
     Indication: PSORIATIC ARTHROPATHY
     Route: 058
  4. STELARA [Suspect]
     Active Substance: USTEKINUMAB
     Indication: PSORIATIC ARTHROPATHY
     Route: 058
  5. ACETAMINOPHEN/OXYCODONE HYDROCHLORIDE [Concomitant]
     Active Substance: ACETAMINOPHEN\OXYCODONE HYDROCHLORIDE
     Indication: PAIN
     Route: 048
  6. ENBREL [Suspect]
     Active Substance: ETANERCEPT
     Indication: PSORIATIC ARTHROPATHY
     Route: 065

REACTIONS (18)
  - Vitamin B12 increased [Recovering/Resolving]
  - Gastritis [Recovering/Resolving]
  - Intentional product misuse [Recovering/Resolving]
  - Gamma-glutamyltransferase abnormal [Recovering/Resolving]
  - Alanine aminotransferase abnormal [Recovering/Resolving]
  - Psoriasis [Recovering/Resolving]
  - Arthritis [Recovering/Resolving]
  - Bacteraemia [Recovering/Resolving]
  - Gastric ulcer [Recovering/Resolving]
  - Anaemia of chronic disease [Recovering/Resolving]
  - Red blood cell count decreased [Recovering/Resolving]
  - Diverticulum [Recovering/Resolving]
  - Prothrombin time abnormal [Recovering/Resolving]
  - Mean cell volume decreased [Recovering/Resolving]
  - Blood folate increased [Recovering/Resolving]
  - Iron deficiency anaemia [Recovering/Resolving]
  - Antinuclear antibody positive [Recovering/Resolving]
  - Diverticulum intestinal [Recovering/Resolving]
